FAERS Safety Report 9540992 (Version 1)
Quarter: 2013Q3

REPORT INFORMATION
  Report Type: Spontaneous
  Country: US (occurrence: US)
  Receive Date: 20130922
  Receipt Date: 20130922
  Transmission Date: 20140515
  Serious: No
  Sender: FDA-Public Use
  Company Number: US-ALLERGAN-1212303US

PATIENT
  Age: 56 Year
  Sex: Female

DRUGS (5)
  1. SANCTURA XR [Suspect]
     Indication: PRODUCT USED FOR UNKNOWN INDICATION
     Dosage: UNK
     Route: 048
     Dates: start: 20120715, end: 20120902
  2. ZYRTEC                             /00884302/ [Concomitant]
     Indication: PRODUCT USED FOR UNKNOWN INDICATION
  3. DOXYCYCLINE [Concomitant]
     Indication: ROSACEA
  4. BACLOFEN [Concomitant]
     Indication: MULTIPLE SCLEROSIS
  5. BETASERON                          /01229701/ [Concomitant]
     Indication: MULTIPLE SCLEROSIS

REACTIONS (5)
  - Abnormal dreams [Unknown]
  - Flushing [Unknown]
  - Pruritus [Recovering/Resolving]
  - Chromatopsia [Unknown]
  - Flushing [Unknown]
